FAERS Safety Report 4377776-5 (Version None)
Quarter: 2004Q2

REPORT INFORMATION
  Report Type: 
  Country: None (occurrence: None)
  Receive Date: 20040615
  Receipt Date: 20040615
  Transmission Date: 20050107
  Serious: Yes (Life-Threatening, Hospitalization)
  Sender: FDA-Public Use
  Company Number: None

PATIENT
  Age: 33 Year
  Sex: Male
  Weight: 58.9676 kg

DRUGS (3)
  1. CELECOXIB [Suspect]
     Indication: ARTHRALGIA
     Dosage: ONE DOSE
  2. CELECOXIB [Suspect]
     Indication: BACK PAIN
     Dosage: ONE DOSE
  3. PENICILLIN [Concomitant]

REACTIONS (6)
  - CYANOSIS [None]
  - DIZZINESS [None]
  - DYSPNOEA [None]
  - NAUSEA [None]
  - PALLOR [None]
  - TACHYPNOEA [None]
